FAERS Safety Report 8540459-1 (Version None)
Quarter: 2012Q3

REPORT INFORMATION
  Report Type: 
  Country: None (occurrence: None)
  Receive Date: 20120726
  Receipt Date: 20110718
  Transmission Date: 20120928
  Serious: No
  Sender: FDA-Public Use
  Company Number: US-ASTRAZENECA-2011SE43036

PATIENT
  Age: 10756 Day
  Sex: Female
  Weight: 86.6 kg

DRUGS (7)
  1. WELLBUTRIN SR [Concomitant]
     Dosage: 100 MG 1/1 A 1/1 NOON
     Dates: start: 20020226
  2. PROPRANOLOL [Concomitant]
     Dosage: 10 MG 1/1 BID
     Dates: start: 20020106
  3. PAXIL CR [Concomitant]
     Dosage: 37.5 MG AM
     Route: 048
     Dates: start: 20020106
  4. RISPERDAL [Concomitant]
     Dates: start: 20020802, end: 20020815
  5. ADVIR [Concomitant]
     Dosage: 250/50 BID
  6. SEROQUEL [Suspect]
     Dosage: 25-300 MG
     Route: 048
     Dates: start: 20020106
  7. SEROQUEL [Suspect]
     Dosage: 300 MG PO X 3,400 MG X 3,500 MG X 3, UP TO 600 MG X 3, MAY INCREASE 100 MG EVERY THREE DAYS.
     Route: 048
     Dates: start: 20020815

REACTIONS (4)
  - POLYCYSTIC OVARIES [None]
  - DYSHIDROSIS [None]
  - DIABETES MELLITUS [None]
  - WOUND HEALING NORMAL [None]
